FAERS Safety Report 5982349-4 (Version None)
Quarter: 2008Q4

REPORT INFORMATION
  Report Type: 
  Country: None (occurrence: None)
  Receive Date: 20081208
  Receipt Date: 20081125
  Transmission Date: 20090506
  Serious: Yes (Other)
  Sender: FDA-Public Use
  Company Number: US-BIOGENIDEC-2008BI011383

PATIENT
  Age: 35 Year
  Sex: Female

DRUGS (3)
  1. TYSABRI [Suspect]
     Indication: MULTIPLE SCLEROSIS
     Dosage: BASED ON LMP
     Route: 042
     Dates: start: 20070523, end: 20080326
  2. DEPAKOTE [Concomitant]
     Indication: HEADACHE
     Dates: end: 20080401
  3. BIRTH CONTROL PILLS [Concomitant]
     Indication: CONTRACEPTION
     Route: 048
     Dates: end: 20080401

REACTIONS (2)
  - PREGNANCY [None]
  - PREMATURE LABOUR [None]
